FAERS Safety Report 4728086-5 (Version None)
Quarter: 2005Q3

REPORT INFORMATION
  Report Type: 
  Country: None (occurrence: None)
  Receive Date: 20050729
  Receipt Date: 20050630
  Transmission Date: 20060218
  Serious: Yes (Other)
  Sender: FDA-Public Use
  Company Number: PHBS2005JP09459

PATIENT

DRUGS (3)
  1. VOLTAREN [Suspect]
     Indication: ANALGESIC THERAPY
     Dosage: 50 MG/DAY
     Route: 054
     Dates: start: 20050630, end: 20050630
  2. LOXONIN [Suspect]
     Route: 048
  3. RADIATION THERAPY [Concomitant]

REACTIONS (4)
  - ECZEMA [None]
  - PHARYNGEAL OEDEMA [None]
  - RASH [None]
  - SPEECH DISORDER [None]
